FAERS Safety Report 6614521-4 (Version None)
Quarter: 2010Q1

REPORT INFORMATION
  Report Type: 
  Country: None (occurrence: None)
  Receive Date: 20100304
  Receipt Date: 20100304
  Transmission Date: 20100710
  Serious: Yes (Hospitalization)
  Sender: FDA-Public Use
  Company Number: None

PATIENT
  Sex: Female
  Weight: 86.6 kg

DRUGS (2)
  1. TAXOL [Suspect]
     Dosage: 462 MG
     Dates: end: 20100113
  2. HERCEPTIN [Suspect]
     Dosage: 495 MG
     Dates: end: 20080113

REACTIONS (3)
  - ASTHENIA [None]
  - ATRIAL FIBRILLATION [None]
  - CHRONIC OBSTRUCTIVE PULMONARY DISEASE [None]
